FAERS Safety Report 8132156 (Version 5)
Quarter: 2018Q3

REPORT INFORMATION
  Report Type: Spontaneous
  Country: AU (occurrence: US)
  Receive Date: 20110912
  Receipt Date: 20180901
  Transmission Date: 20181010
  Serious: Yes (Hospitalization, Other)
  Sender: FDA-Public Use
  Company Number: US-AMGEN-USASP2011045672

PATIENT
  Age: 73 Year
  Sex: Female
  Weight: 58.5 kg

DRUGS (3)
  1. VITAMIN D [Concomitant]
     Active Substance: CHOLECALCIFEROL
     Dosage: UNK
  2. PROLIA [Suspect]
     Active Substance: DENOSUMAB
     Indication: OSTEOPOROSIS POSTMENOPAUSAL
     Dosage: 60 MG, Q6MO
     Route: 065
     Dates: start: 20101208
  3. HYDROCHLOROTHIAZIDE. [Concomitant]
     Active Substance: HYDROCHLOROTHIAZIDE
     Dosage: UNK

REACTIONS (15)
  - Arthralgia [Recovered/Resolved]
  - Pneumonia [Recovered/Resolved]
  - Wheelchair user [Recovered/Resolved]
  - Osteonecrosis [Recovered/Resolved]
  - Bed rest [Recovered/Resolved]
  - Pharyngitis [Recovered/Resolved]
  - Rash [Recovered/Resolved]
  - Weight increased [Recovered/Resolved]
  - Angina pectoris [Recovered/Resolved]
  - Bone pain [Recovered/Resolved]
  - Vasculitis [Recovered/Resolved]
  - Gait disturbance [Recovered/Resolved]
  - Oedema peripheral [Recovered/Resolved]
  - Cystitis [Recovered/Resolved]
  - Upper respiratory tract infection [Recovered/Resolved]

NARRATIVE: CASE EVENT DATE: 201103
